FAERS Safety Report 8416300-4 (Version None)
Quarter: 2012Q2

REPORT INFORMATION
  Report Type: 
  Country: None (occurrence: None)
  Receive Date: 20120606
  Receipt Date: 20120525
  Transmission Date: 20120825
  Serious: Yes (Death, Hospitalization)
  Sender: FDA-Public Use
  Company Number: US-ROCHE-1032471

PATIENT
  Sex: Female
  Weight: 70.37 kg

DRUGS (1)
  1. XELODA [Suspect]
     Indication: BREAST CANCER METASTATIC
     Route: 048
     Dates: start: 20111212

REACTIONS (3)
  - PLEURAL EFFUSION [None]
  - BREAST CANCER METASTATIC [None]
  - PNEUMOTHORAX [None]
